FAERS Safety Report 13243743 (Version 1)
Quarter: 2017Q1

REPORT INFORMATION
  Report Type: Report from Study
  Country: US (occurrence: US)
  Receive Date: 20170217
  Receipt Date: 20170217
  Transmission Date: 20170428
  Serious: Yes (Hospitalization, Other)
  Sender: FDA-Public Use
  Company Number: US-SA-2015SA134767

PATIENT
  Age: 3 Year
  Sex: Female

DRUGS (1)
  1. LUMIZYME [Suspect]
     Active Substance: ALGLUCOSIDASE ALFA
     Indication: GLYCOGEN STORAGE DISEASE TYPE II
     Route: 041
     Dates: start: 20121008

REACTIONS (6)
  - Fall [Unknown]
  - Compartment syndrome [Unknown]
  - Respiratory disorder [Unknown]
  - Head injury [Unknown]
  - Lung infection [Unknown]
  - Fasciitis [Unknown]

NARRATIVE: CASE EVENT DATE: 201508
